FAERS Safety Report 22237984 (Version 8)
Quarter: 2024Q4

REPORT INFORMATION
  Report Type: Spontaneous
  Country: JP (occurrence: JP)
  Receive Date: 20230421
  Receipt Date: 20241114
  Transmission Date: 20250115
  Serious: Yes (Other)
  Sender: ROCHE
  Company Number: JP-CHUGAI-2023010822AA

PATIENT
  Age: 76 Year
  Sex: Female
  Weight: 47.0 kg

DRUGS (2)
  1. VABYSMO [Suspect]
     Active Substance: FARICIMAB-SVOA
     Indication: Neovascular age-related macular degeneration
     Dosage: STRENGTH 120 MG/ML
     Route: 031
     Dates: start: 20221228, end: 20230228
  2. ATORVASTATIN CALCIUM [Concomitant]
     Active Substance: ATORVASTATIN CALCIUM
     Dosage: UNK
     Route: 065

REACTIONS (3)
  - Anterior chamber inflammation [Recovered/Resolved]
  - Retinal vasculitis [Recovered/Resolved]
  - Optic disc vascular disorder [Recovered/Resolved]

NARRATIVE: CASE EVENT DATE: 20230323
